FAERS Safety Report 10284816 (Version 1)
Quarter: 2014Q3

REPORT INFORMATION
  Report Type: Spontaneous
  Country: US (occurrence: US)
  Receive Date: 20140708
  Receipt Date: 20140708
  Transmission Date: 20150326
  Serious: Yes (Death)
  Sender: FDA-Public Use
  Company Number: US-BRISTOL-MYERS SQUIBB COMPANY-21159256

PATIENT
  Age: 25 Year
  Sex: Female
  Weight: 90.7 kg

DRUGS (12)
  1. DILAUDID [Suspect]
     Active Substance: HYDROMORPHONE HYDROCHLORIDE
     Indication: ABDOMINAL PAIN UPPER
     Dosage: ONGOING
     Dates: start: 20110225
  2. CYMBALTA [Suspect]
     Active Substance: DULOXETINE HYDROCHLORIDE
     Indication: ABDOMINAL PAIN UPPER
     Dosage: ONGOING
     Dates: start: 20110225
  3. ABILIFY [Suspect]
     Active Substance: ARIPIPRAZOLE
     Indication: ABDOMINAL PAIN UPPER
     Dosage: ONGOING
     Dates: start: 20110225
  4. MORPHINE SULFATE. [Suspect]
     Active Substance: MORPHINE SULFATE
  5. FENTANYL. [Suspect]
     Active Substance: FENTANYL
     Indication: ABDOMINAL PAIN UPPER
     Dosage: ONGOING
     Dates: start: 20110225
  6. PROMETHAZINE [Suspect]
     Active Substance: PROMETHAZINE\PROMETHAZINE HYDROCHLORIDE
     Indication: ABDOMINAL PAIN UPPER
     Dosage: ALSO SUPPOSITORY
  7. XANAX [Suspect]
     Active Substance: ALPRAZOLAM
  8. ZOLOFT [Suspect]
     Active Substance: SERTRALINE HYDROCHLORIDE
     Indication: ABDOMINAL PAIN UPPER
     Dosage: ONGOING
     Dates: start: 20110225
  9. LORAZEPAM. [Suspect]
     Active Substance: LORAZEPAM
     Indication: ABDOMINAL PAIN UPPER
     Dosage: ONGOING
     Dates: start: 20110225
  10. KLONOPIN [Suspect]
     Active Substance: CLONAZEPAM
     Indication: ABDOMINAL PAIN UPPER
     Dosage: ONGOING
     Dates: start: 20110225
  11. PHENERGAN [Suspect]
     Active Substance: PROMETHAZINE HYDROCHLORIDE
     Indication: ABDOMINAL PAIN UPPER
     Dosage: SUPPOSITORY?ONGOING
     Dates: start: 20110225
  12. TORADOL [Suspect]
     Active Substance: KETOROLAC TROMETHAMINE
     Indication: ABDOMINAL PAIN UPPER
     Dosage: INJECTION?ONGOING
     Dates: start: 20110225

REACTIONS (2)
  - Abnormal behaviour [Unknown]
  - Overdose [Fatal]

NARRATIVE: CASE EVENT DATE: 201103
